FAERS Safety Report 25173234 (Version 1)
Quarter: 2025Q2

REPORT INFORMATION
  Report Type: Spontaneous
  Country: GB (occurrence: GB)
  Receive Date: 20250408
  Receipt Date: 20250408
  Transmission Date: 20250716
  Serious: Yes (Other)
  Sender: B BRAUN
  Company Number: GB-B.Braun Medical Inc.-2174435

PATIENT
  Age: 54 Year
  Sex: Female

DRUGS (4)
  1. ACETAMINOPHEN [Suspect]
     Active Substance: ACETAMINOPHEN
  2. IBUPROFEN [Suspect]
     Active Substance: IBUPROFEN
  3. ACETAMINOPHEN\IBUPROFEN [Concomitant]
     Active Substance: ACETAMINOPHEN\IBUPROFEN
  4. DEXAMETHASONE\NEOMYCIN SULFATE [Suspect]
     Active Substance: DEXAMETHASONE\NEOMYCIN SULFATE

REACTIONS (4)
  - Vestibular migraine [Unknown]
  - Ear pain [Unknown]
  - Vision blurred [Not Recovered/Not Resolved]
  - Pain [Unknown]
